FAERS Safety Report 4293641-6 (Version None)
Quarter: 2004Q1

REPORT INFORMATION
  Report Type: 
  Country: None (occurrence: None)
  Receive Date: 20040210
  Receipt Date: 20040128
  Transmission Date: 20041129
  Serious: Yes (Hospitalization)
  Sender: FDA-Public Use
  Company Number: 2004005880

PATIENT
  Age: 66 Year
  Sex: Male

DRUGS (9)
  1. FLUCONAZOLE [Suspect]
     Indication: ILL-DEFINED DISORDER
     Dosage: 50 MG (DAILY), ORAL
     Route: 048
     Dates: start: 20031115, end: 20031231
  2. PHENOXYMETHYLPENICILLIN           (PHENOXYMETHYLPENICILLIN) [Suspect]
     Indication: ILL-DEFINED DISORDER
     Dosage: I.U. (DAILY), ORAL
     Route: 048
     Dates: start: 20031105
  3. BACTRIM [Suspect]
     Indication: ILL-DEFINED DISORDER
     Dosage: 1 GRAM (DAILY), ORAL
     Route: 048
     Dates: start: 20031129
  4. MYCOPHENOLATE MOFETIL (MYCOPHENOLATE MOFETIL) [Suspect]
     Indication: ILL-DEFINED DISORDER
     Dosage: 500 MG (DAILY), ORAL
     Route: 048
     Dates: start: 20031210, end: 20031227
  5. VALACYCLOVIR HCL [Suspect]
     Indication: ILL-DEFINED DISORDER
     Dosage: 500 MG (DAILY), ORAL
     Route: 048
     Dates: start: 20031115
  6. CYCLOSPORINE [Suspect]
     Indication: ILL-DEFINED DISORDER
     Dosage: 50 MG (DAILY), ORAL
     Route: 048
     Dates: end: 20031210
  7. FILGRASTIM (FILGRASTIM) [Concomitant]
  8. PREDNISONE [Concomitant]
  9. CALCIUM FOLINATE (CALCIUM FOLINATE) [Concomitant]

REACTIONS (6)
  - ASTHENIA [None]
  - INFECTION [None]
  - LEUKOPENIA [None]
  - NEUTROPENIA [None]
  - PYREXIA [None]
  - THROMBOCYTOPENIA [None]
